FAERS Safety Report 9603149 (Version 1)
Quarter: 2013Q4

REPORT INFORMATION
  Report Type: Spontaneous
  Country: CN (occurrence: CN)
  Receive Date: 20131007
  Receipt Date: 20131007
  Transmission Date: 20140711
  Serious: Yes (Life-Threatening, Hospitalization, Other)
  Sender: FDA-Public Use
  Company Number: CN-ACTAVIS-2013-17488

PATIENT
  Age: 25 Year
  Sex: Female

DRUGS (1)
  1. NIFEDIPINE (UNKNOWN) [Suspect]
     Indication: SUICIDE ATTEMPT
     Dosage: 6 G, SINGLE
     Route: 065

REACTIONS (9)
  - Respiratory failure [Recovered/Resolved]
  - Hypotension [Recovered/Resolved]
  - Loss of consciousness [Recovered/Resolved]
  - Metabolic acidosis [Recovered/Resolved]
  - Hyperinsulinaemia [Recovered/Resolved]
  - Cardiac failure [Recovered/Resolved]
  - Tachycardia [Recovered/Resolved]
  - Vasodilatation [Recovered/Resolved]
  - Intentional overdose [Recovered/Resolved]
